FAERS Safety Report 6669275-2 (Version None)
Quarter: 2010Q2

REPORT INFORMATION
  Report Type: 
  Country: None (occurrence: None)
  Receive Date: 20100406
  Receipt Date: 20100330
  Transmission Date: 20101027
  Serious: Yes (Hospitalization)
  Sender: FDA-Public Use
  Company Number: FR-WYE-G05860110

PATIENT
  Sex: Male

DRUGS (3)
  1. PIPERACILLIN AND TAZOBACTAM [Suspect]
     Dosage: UNKNOWN
     Route: 042
     Dates: start: 20080801, end: 20080903
  2. FRAXIPARINE [Suspect]
     Dosage: UNKNOWN
     Route: 058
     Dates: start: 20080801, end: 20080903
  3. PANTOPRAZOLE SODIUM [Suspect]
     Dosage: UNKNOWN
     Route: 048
     Dates: start: 20080801, end: 20080903

REACTIONS (12)
  - AREFLEXIA [None]
  - ASCITES [None]
  - DRUG RASH WITH EOSINOPHILIA AND SYSTEMIC SYMPTOMS [None]
  - EMPHYSEMA [None]
  - HAEMOGLOBIN DECREASED [None]
  - LICHENOID KERATOSIS [None]
  - MOTOR DYSFUNCTION [None]
  - NEPHROTIC SYNDROME [None]
  - PSYCHOMOTOR RETARDATION [None]
  - PULMONARY CONGESTION [None]
  - RENAL FAILURE ACUTE [None]
  - SHOCK [None]
